FAERS Safety Report 7681901-8 (Version None)
Quarter: 2011Q3

REPORT INFORMATION
  Report Type: 
  Country: None (occurrence: None)
  Receive Date: 20110815
  Receipt Date: 20110809
  Transmission Date: 20111222
  Serious: Yes (Hospitalization)
  Sender: FDA-Public Use
  Company Number: FI-BIOGENIDEC-2011BI024050

PATIENT
  Age: 48 Year
  Sex: Female

DRUGS (13)
  1. FUROSEMIDE [Concomitant]
  2. AMANTADINE HCL [Concomitant]
  3. THYROXIN [Concomitant]
  4. CITALOPRAM [Concomitant]
  5. BACLOFEN [Concomitant]
  6. PANTESTON [Concomitant]
  7. TEMATSEPAM [Concomitant]
  8. TYSABRI [Suspect]
     Indication: RELAPSING-REMITTING MULTIPLE SCLEROSIS
     Route: 042
     Dates: start: 20101027
  9. ESTRADIOL [Concomitant]
  10. ESTRADIOL [Concomitant]
  11. FLUVASTATIN [Concomitant]
  12. NITROFURANTOIN [Concomitant]
  13. KLONATSEPAM [Concomitant]

REACTIONS (1)
  - ENTEROVESICAL FISTULA [None]
